FAERS Safety Report 9603501 (Version 1)
Quarter: 2013Q4

REPORT INFORMATION
  Report Type: Spontaneous
  Country: IN (occurrence: IN)
  Receive Date: 20131007
  Receipt Date: 20131007
  Transmission Date: 20140711
  Serious: Yes (Other)
  Sender: FDA-Public Use
  Company Number: PHHY2013IN110670

PATIENT
  Age: 30 Year
  Sex: Male

DRUGS (6)
  1. DICLOFENAC [Suspect]
     Indication: PYREXIA
  2. DICLOFENAC [Suspect]
     Indication: NASOPHARYNGITIS
  3. CEPHALOSPORINES [Suspect]
     Indication: NASOPHARYNGITIS
  4. CEPHALOSPORINES [Suspect]
     Indication: PYREXIA
  5. PARACETAMOL [Concomitant]
     Indication: NASOPHARYNGITIS
  6. PARACETAMOL [Concomitant]
     Indication: PYREXIA

REACTIONS (10)
  - Erythema multiforme [Recovered/Resolved]
  - Mouth ulceration [Recovered/Resolved]
  - Oral pain [Recovered/Resolved]
  - Oral mucosal blistering [Recovered/Resolved]
  - Chapped lips [Recovered/Resolved]
  - Lip ulceration [Recovered/Resolved]
  - Oral mucosal exfoliation [Recovered/Resolved]
  - Oral mucosal erythema [Recovered/Resolved]
  - Dysphagia [Recovered/Resolved]
  - Scab [Recovered/Resolved]
